FAERS Safety Report 5345419-X (Version None)
Quarter: 2007Q2

REPORT INFORMATION
  Report Type: 
  Country: None (occurrence: None)
  Receive Date: 20070601
  Receipt Date: 20070518
  Transmission Date: 20071010
  Serious: Yes (Other)
  Sender: FDA-Public Use
  Company Number: 2007S1004469

PATIENT
  Age: 88 Year
  Sex: Female
  Weight: 34.0198 kg

DRUGS (7)
  1. FENTANYL TRANSDERMAL SYSTEM [Suspect]
     Indication: ARTHRITIS
     Dosage: 25 UG/HR; EVERY 3 DAYS; TRANSDERMAL
     Route: 062
     Dates: start: 20070401
  2. HYDRALAZINE HCL [Concomitant]
  3. HYDROCHLORIDE [Concomitant]
  4. COREG [Concomitant]
  5. DARVOCET [Concomitant]
  6. IRON DEXTRAN [Concomitant]
  7. ACETAMINOPHE W/ HYDROCODONE [Concomitant]

REACTIONS (3)
  - DEHYDRATION [None]
  - DIARRHOEA [None]
  - WEIGHT DECREASED [None]
